FAERS Safety Report 5220096-7 (Version None)
Quarter: 2007Q1

REPORT INFORMATION
  Report Type: 
  Country: None (occurrence: None)
  Receive Date: 20061121
  Receipt Date: 20060731
  Transmission Date: 20070707
  Serious: No
  Sender: FDA-Public Use
  Company Number: TPA2006A01233

PATIENT
  Age: 80 Year
  Sex: Female
  Weight: 46.2669 kg

DRUGS (6)
  1. ROZEREM [Suspect]
     Indication: INSOMNIA
     Dosage: 8 MG, QHS, PER ORAL
     Route: 048
     Dates: start: 20060729, end: 20060730
  2. VITAMIN (VITAMINS) [Concomitant]
  3. ENALAPRIL MALEATE [Concomitant]
  4. TOPROL-XL [Concomitant]
  5. CLONAZEPAM [Concomitant]
  6. AMBIEN [Concomitant]

REACTIONS (2)
  - DRUG INEFFECTIVE [None]
  - POOR QUALITY SLEEP [None]
